FAERS Safety Report 9961316 (Version 1)
Quarter: 2014Q1

REPORT INFORMATION
  Report Type: Report from Study
  Country: BR (occurrence: BR)
  Receive Date: 20140305
  Receipt Date: 20140305
  Transmission Date: 20141002
  Serious: Yes (Other)
  Sender: FDA-Public Use
  Company Number: PHHY2014BR025003

PATIENT
  Sex: Female
  Weight: 65 kg

DRUGS (4)
  1. SANDOSTATIN LAR [Suspect]
     Indication: ACROMEGALY
     Dosage: UNK UKN, UNK
  2. SANDOSTATIN LAR [Suspect]
     Dosage: 1 DF, (30 MG) EVERY 28 DAYS
  3. SANDOSTATIN LAR [Suspect]
     Dosage: 1 DF, (30 MG) EVERY 28 DAYS
     Dates: start: 20140205
  4. DOSTINEX [Concomitant]
     Indication: BLOOD GROWTH HORMONE ABNORMAL
     Dosage: 2 DF, (0.5 MG) PER WEEK
     Dates: start: 201402

REACTIONS (6)
  - Blindness unilateral [Unknown]
  - Diabetic retinopathy [Unknown]
  - Visual acuity reduced [Not Recovered/Not Resolved]
  - Hypoacusis [Not Recovered/Not Resolved]
  - Glaucoma [Unknown]
  - Blood glucose increased [Not Recovered/Not Resolved]
